FAERS Safety Report 6707390-5 (Version None)
Quarter: 2010Q2

REPORT INFORMATION
  Report Type: 
  Country: None (occurrence: None)
  Receive Date: 20100503
  Receipt Date: 20090324
  Transmission Date: 20101027
  Serious: No
  Sender: FDA-Public Use
  Company Number: US-ASTRAZENECA-2009UW07593

PATIENT
  Age: 34074 Day
  Sex: Female
  Weight: 68.5 kg

DRUGS (1)
  1. NEXIUM [Suspect]
     Route: 048
     Dates: start: 20090316

REACTIONS (4)
  - DIZZINESS [None]
  - HEADACHE [None]
  - NECK PAIN [None]
  - RENAL DISORDER [None]
